FAERS Safety Report 11773368 (Version 2)
Quarter: 2015Q4

REPORT INFORMATION
  Report Type: Report from Study
  Country: CA (occurrence: CA)
  Receive Date: 20151124
  Receipt Date: 20151204
  Transmission Date: 20160304
  Serious: Yes (Death)
  Sender: FDA-Public Use
  Company Number: CA-BIOGENIDEC-2015BI152423

PATIENT
  Age: 65 Year
  Sex: Female

DRUGS (10)
  1. FAMPYRA [Suspect]
     Active Substance: DALFAMPRIDINE
     Indication: GAIT DISTURBANCE
     Route: 048
     Dates: start: 20150921, end: 20151113
  2. GABAPENTIN. [Concomitant]
     Active Substance: GABAPENTIN
  3. CITALOPRAM [Concomitant]
     Active Substance: CITALOPRAM HYDROBROMIDE
  4. BACLOFEN. [Concomitant]
     Active Substance: BACLOFEN
  5. SYMBICORT [Concomitant]
     Active Substance: BUDESONIDE\FORMOTEROL FUMARATE DIHYDRATE
  6. ASA [Concomitant]
     Active Substance: ASPIRIN
  7. NAPROXEN. [Concomitant]
     Active Substance: NAPROXEN
  8. RAMIPRIL. [Concomitant]
     Active Substance: RAMIPRIL
  9. HYDROMORPHONE [Concomitant]
     Active Substance: HYDROMORPHONE
  10. SYNTHROID [Concomitant]
     Active Substance: LEVOTHYROXINE SODIUM

REACTIONS (2)
  - Post procedural complication [Unknown]
  - Cardiac failure congestive [Fatal]

NARRATIVE: CASE EVENT DATE: 201509
